FAERS Safety Report 7865485-7 (Version None)
Quarter: 2011Q4

REPORT INFORMATION
  Report Type: 
  Country: None (occurrence: None)
  Receive Date: 20111028
  Receipt Date: 20110106
  Transmission Date: 20120403
  Serious: No
  Sender: FDA-Public Use
  Company Number: US-GLAXOSMITHKLINE-A0903711A

PATIENT
  Age: 65 Year
  Sex: Female

DRUGS (5)
  1. NEBULIZER [Concomitant]
  2. ADVAIR DISKUS 100/50 [Suspect]
     Indication: ASTHMA
     Dosage: 1PUFF TWICE PER DAY
     Route: 055
     Dates: start: 20101217, end: 20101218
  3. CLONAZEPAM [Concomitant]
  4. LEXAPRO [Concomitant]
  5. SYNTHROID [Concomitant]

REACTIONS (5)
  - TREMOR [None]
  - RASH PRURITIC [None]
  - ANXIETY [None]
  - NERVOUSNESS [None]
  - RASH PAPULAR [None]
